FAERS Safety Report 8486413-X (Version None)
Quarter: 2012Q3

REPORT INFORMATION
  Report Type: 
  Country: None (occurrence: None)
  Receive Date: 20120703
  Receipt Date: 20120627
  Transmission Date: 20120928
  Serious: Yes (Death, Hospitalization, Other)
  Sender: FDA-Public Use
  Company Number: LU-PFIZER INC-2012154589

PATIENT
  Age: 68 Year
  Sex: Female

DRUGS (3)
  1. LIPITOR [Suspect]
     Indication: CARDIOVASCULAR DISORDER
     Dosage: 80 MG, 1X/DAY
     Route: 048
     Dates: start: 20040101
  2. SINEQUAN [Concomitant]
     Indication: DEPRESSION
     Dosage: UNK
     Dates: start: 20111101
  3. ASPIRIN [Concomitant]
     Dosage: UNK

REACTIONS (8)
  - RHABDOMYOLYSIS [None]
  - TRANSAMINASES INCREASED [None]
  - DEATH [None]
  - BLOOD LACTATE DEHYDROGENASE INCREASED [None]
  - GAMMA-GLUTAMYLTRANSFERASE INCREASED [None]
  - LOW DENSITY LIPOPROTEIN INCREASED [None]
  - TRANSIENT ISCHAEMIC ATTACK [None]
  - FALL [None]
